FAERS Safety Report 20838154 (Version 1)
Quarter: 2022Q2

REPORT INFORMATION
  Report Type: Spontaneous
  Country: FR (occurrence: FR)
  Receive Date: 20220517
  Receipt Date: 20220517
  Transmission Date: 20220721
  Serious: Yes (Death, Other)
  Sender: FDA-Public Use
  Company Number: FR-AMGEN-FRASP2022081742

PATIENT

DRUGS (2)
  1. PANITUMUMAB [Suspect]
     Active Substance: PANITUMUMAB
     Indication: Product used for unknown indication
     Dosage: UNK
     Route: 065
  2. BEVACIZUMAB [Suspect]
     Active Substance: BEVACIZUMAB
     Indication: Product used for unknown indication
     Dosage: UNK
     Route: 065

REACTIONS (21)
  - Cardiac failure [Fatal]
  - Septic shock [Fatal]
  - Respiratory failure [Fatal]
  - Pneumonia [Unknown]
  - Renal failure [Unknown]
  - Haematotoxicity [Unknown]
  - Anastomotic leak [Unknown]
  - Abdominal abscess [Unknown]
  - Escherichia test positive [Unknown]
  - Sepsis [Unknown]
  - Urogenital fistula [Unknown]
  - Lung disorder [Unknown]
  - Pyelonephritis [Unknown]
  - Intestinal perforation [Unknown]
  - Peritonitis [Unknown]
  - Haemoperitoneum [Unknown]
  - Impaired gastric emptying [Unknown]
  - White blood cell count decreased [Unknown]
  - Neutrophil/lymphocyte ratio decreased [Unknown]
  - C-reactive protein decreased [Unknown]
  - Lymphocyte count decreased [Unknown]
